FAERS Safety Report 14131859 (Version 1)
Quarter: 2017Q4

REPORT INFORMATION
  Report Type: Spontaneous
  Country: FR (occurrence: FR)
  Receive Date: 20171026
  Receipt Date: 20171026
  Transmission Date: 20180321
  Serious: Yes (Other)
  Sender: FDA-Public Use
  Company Number: FR-MYLANLABS-2017M1066777

PATIENT
  Age: 75 Year
  Sex: Female

DRUGS (1)
  1. ISOPTINE 120 MG, G?LULE [Suspect]
     Active Substance: VERAPAMIL HYDROCHLORIDE
     Indication: PRODUCT USED FOR UNKNOWN INDICATION
     Dosage: 2 DF, ONCE
     Route: 048
     Dates: start: 20170507

REACTIONS (3)
  - Feeling abnormal [Recovered/Resolved]
  - Bradycardia [Recovered/Resolved]
  - Medication error [Recovered/Resolved]

NARRATIVE: CASE EVENT DATE: 20170507
